FAERS Safety Report 25310288 (Version 2)
Quarter: 2025Q2

REPORT INFORMATION
  Report Type: Spontaneous
  Country: FR (occurrence: FR)
  Receive Date: 20250514
  Receipt Date: 20250603
  Transmission Date: 20250717
  Serious: Yes (Life-Threatening, Hospitalization, Other)
  Sender: CHEPLAPHARM
  Company Number: None

PATIENT
  Age: 55 Year
  Sex: Male
  Weight: 86 kg

DRUGS (16)
  1. OLANZAPINE [Interacting]
     Active Substance: OLANZAPINE
     Indication: Psychotic disorder
     Dosage: DAILY DOSE: 30 MILLIGRAM
     Route: 048
     Dates: end: 20250413
  2. QUETIAPINE [Interacting]
     Active Substance: QUETIAPINE
     Indication: Psychotic disorder
     Dosage: 100 MG/DAY?DAILY DOSE: 2 MILLIGRAM
     Route: 048
  3. DEPAKOTE [Interacting]
     Active Substance: DIVALPROEX SODIUM
     Indication: Psychotic disorder
     Dosage: DAILY DOSE: 2000 MILLIGRAM
     Route: 048
     Dates: end: 20250413
  4. RISPERIDONE [Interacting]
     Active Substance: RISPERIDONE
     Indication: Psychotic disorder
     Dosage: DAILY DOSE: 12 MILLIGRAM
     Route: 048
     Dates: end: 20250413
  5. DIAZEPAM [Interacting]
     Active Substance: DIAZEPAM
     Indication: Psychotic disorder
     Dosage: 25 MG/DAY AS NEEDED?DAILY DOSE: 25 MILLIGRAM
     Route: 048
     Dates: end: 20250413
  6. HALDOL [Interacting]
     Active Substance: HALOPERIDOL
     Indication: Psychotic disorder
     Dosage: 4 MG/DAY + 2 MG AS NEEDED?DAILY DOSE: 6 MILLIGRAM
     Route: 048
     Dates: end: 20250413
  7. HALDOL [Interacting]
     Active Substance: HALOPERIDOL
     Indication: Psychotic disorder
     Dosage: DAILY DOSE: 5 MILLIGRAM
     Route: 048
     Dates: end: 20250413
  8. LOXAPINE [Interacting]
     Active Substance: LOXAPINE
     Indication: Psychotic disorder
     Dosage: 175 MG/DAY AS NEEDED?DAILY DOSE: 175 MILLIGRAM
     Route: 048
     Dates: end: 20250413
  9. LOXAPINE [Interacting]
     Active Substance: LOXAPINE
     Indication: Psychotic disorder
     Dosage: 175 MG/DAY AS NEEDED?DAILY DOSE: 150 MILLIGRAM
     Route: 048
     Dates: end: 20250413
  10. HERBALS\SAW PALMETTO [Concomitant]
     Active Substance: HERBALS\SAW PALMETTO
     Dosage: DAILY DOSE: 1 DOSAGE FORM
     Route: 048
  11. HERBALS\SAW PALMETTO [Concomitant]
     Active Substance: HERBALS\SAW PALMETTO
     Dosage: DAILY DOSE: 2 DOSAGE FORM
     Route: 048
  12. TAMSULOSIN [Concomitant]
     Active Substance: TAMSULOSIN
     Dosage: DAILY DOSE: 0.4 MILLIGRAM
     Route: 048
  13. NICARDIPINE [Concomitant]
     Active Substance: NICARDIPINE
     Dosage: EXTENDED-RELEASE CAPSULE?DAILY DOSE: 100 MILLIGRAM
     Route: 048
  14. TROPATEPINE [Concomitant]
     Active Substance: TROPATEPINE
     Indication: Parkinsonism
     Dosage: DAILY DOSE: 20 MILLIGRAM
     Route: 048
  15. TROPATEPINE [Concomitant]
     Active Substance: TROPATEPINE
     Indication: Parkinsonism
     Dosage: DAILY DOSE: 30 MILLIGRAM
     Route: 048
  16. POLYETHYLENE GLYCOLS [Concomitant]
     Active Substance: POLYETHYLENE GLYCOLS
     Dosage: DAILY DOSE: 60 GRAM

REACTIONS (19)
  - Hypoventilation [Unknown]
  - Hypercapnic coma [Unknown]
  - Somnolence [Not Recovered/Not Resolved]
  - Pneumonia aspiration [Recovered/Resolved]
  - Drug interaction [Not Recovered/Not Resolved]
  - Disorientation [Not Recovered/Not Resolved]
  - Choking [Recovered/Resolved]
  - Mental impairment [Unknown]
  - Lung disorder [Unknown]
  - Acute respiratory distress syndrome [Unknown]
  - Pneumonia staphylococcal [Unknown]
  - Tremor [Unknown]
  - Fall [Unknown]
  - Back pain [Unknown]
  - Haematoma [Unknown]
  - Haemorrhage [Unknown]
  - Dysphagia [Unknown]
  - Headache [Unknown]
  - Hyperhidrosis [Unknown]

NARRATIVE: CASE EVENT DATE: 20250101
